FAERS Safety Report 24943933 (Version 1)
Quarter: 2025Q1

REPORT INFORMATION
  Report Type: Spontaneous
  Country: US (occurrence: US)
  Receive Date: 20250207
  Receipt Date: 20250207
  Transmission Date: 20250408
  Serious: No
  Sender: PFIZER
  Company Number: US-PFIZER INC-202500024486

PATIENT
  Age: 86 Year
  Sex: Female

DRUGS (1)
  1. TIKOSYN [Suspect]
     Active Substance: DOFETILIDE
     Dates: start: 2025

REACTIONS (3)
  - Vertigo [Unknown]
  - Vertigo positional [Unknown]
  - Vision blurred [Unknown]

NARRATIVE: CASE EVENT DATE: 20250101
